FAERS Safety Report 5453267-5 (Version None)
Quarter: 2007Q3

REPORT INFORMATION
  Report Type: 
  Country: None (occurrence: None)
  Receive Date: 20070914
  Receipt Date: 20070904
  Transmission Date: 20080115
  Serious: Yes (Other)
  Sender: FDA-Public Use
  Company Number: US-PFIZER INC-2007074901

PATIENT
  Sex: Female
  Weight: 52.272 kg

DRUGS (6)
  1. CHANTIX [Suspect]
     Indication: SMOKING CESSATION THERAPY
  2. LYRICA [Suspect]
     Indication: PAIN
     Dosage: TEXT:EVERY DAY
     Dates: start: 20070101, end: 20070801
  3. FOSAMAX PLUS D [Concomitant]
  4. REMERON [Concomitant]
  5. SKELAXIN [Concomitant]
  6. OXYCODONE HCL [Concomitant]

REACTIONS (2)
  - ABDOMINAL DISTENSION [None]
  - WEIGHT INCREASED [None]
